FAERS Safety Report 5990760-0 (Version None)
Quarter: 2008Q4

REPORT INFORMATION
  Report Type: 
  Country: None (occurrence: None)
  Receive Date: 20081202
  Receipt Date: 20080416
  Transmission Date: 20090506
  Serious: Yes (Other)
  Sender: FDA-Public Use
  Company Number: WAES 0804USA03645

PATIENT
  Age: 60 Year
  Sex: Female

DRUGS (3)
  1. FOSAMAX [Suspect]
     Indication: OSTEOPENIA
     Dosage: 70 MG/WKY/PO
     Route: 048
  2. ASPIRIN [Concomitant]
  3. CALCIUM (UNSPECIFIED) [Concomitant]

REACTIONS (3)
  - JOINT CREPITATION [None]
  - OSTEONECROSIS [None]
  - TOOTH DISORDER [None]
